FAERS Safety Report 4602905-5 (Version None)
Quarter: 2005Q1

REPORT INFORMATION
  Report Type: 
  Country: None (occurrence: None)
  Receive Date: 20050307
  Receipt Date: 20050221
  Transmission Date: 20050727
  Serious: No
  Sender: FDA-Public Use
  Company Number: 2005UW02077

PATIENT
  Age: 73 Year
  Sex: Male

DRUGS (17)
  1. CRESTOR [Suspect]
     Indication: HYPERCHOLESTEROLAEMIA
     Dosage: 10 MG DAILY PO
     Route: 048
     Dates: start: 20030101
  2. NEORAL [Suspect]
     Dosage: 100 MG DAILY
  3. CYCLOSPORINE [Concomitant]
  4. ALTACE [Concomitant]
  5. FUROSEMIDE [Concomitant]
  6. IMURAN [Concomitant]
  7. NITROL [Concomitant]
  8. NITRO-DUR [Concomitant]
  9. IMDUR [Concomitant]
  10. ALLOPURINOL [Concomitant]
  11. PLAVIX [Concomitant]
  12. NOVASEN [Concomitant]
  13. PREDNISONE [Concomitant]
  14. RHOVANE [Concomitant]
  15. METOPROLOL [Concomitant]
  16. FLOMAX [Concomitant]
  17. NEXIUM [Concomitant]

REACTIONS (4)
  - DRUG INTERACTION [None]
  - HYPOAESTHESIA [None]
  - LOSS OF CONSCIOUSNESS [None]
  - PARAESTHESIA [None]
